FAERS Safety Report 11878383 (Version 2)
Quarter: 2016Q1

REPORT INFORMATION
  Report Type: Spontaneous
  Country: ES (occurrence: ES)
  Receive Date: 20151230
  Receipt Date: 20160128
  Transmission Date: 20160526
  Serious: Yes (Death, Hospitalization)
  Sender: FDA-Public Use
  Company Number: ES-ACTAVIS-2015-28624

PATIENT
  Age: 48 Year
  Sex: Female

DRUGS (1)
  1. GLIBENCLAMIDE (UNKNOWN) [Suspect]
     Active Substance: GLYBURIDE
     Indication: PRODUCT USED FOR UNKNOWN INDICATION
     Dosage: INTENTIONAL HEAVY INTAKE (AS REPORTED)
     Route: 048

REACTIONS (5)
  - Brain oedema [Fatal]
  - Intentional overdose [Fatal]
  - Brain death [Fatal]
  - Toxicity to various agents [Fatal]
  - Hypoglycaemia [Fatal]
